FAERS Safety Report 10466731 (Version 1)
Quarter: 2014Q3

REPORT INFORMATION
  Report Type: Spontaneous
  Country: US (occurrence: US)
  Receive Date: 20140922
  Receipt Date: 20140922
  Transmission Date: 20150326
  Serious: No
  Sender: FDA-Public Use
  Company Number: US-ACORDA-ACO_102553_2014

PATIENT
  Sex: Female
  Weight: 64.4 kg

DRUGS (5)
  1. ZANAFLEX [Suspect]
     Active Substance: TIZANIDINE HYDROCHLORIDE
     Indication: PAIN
     Dosage: UNK
     Route: 048
     Dates: start: 2011
  2. ZANAFLEX [Suspect]
     Active Substance: TIZANIDINE HYDROCHLORIDE
     Dosage: 6 MG, TID
     Route: 048
     Dates: end: 201403
  3. ZANAFLEX [Suspect]
     Active Substance: TIZANIDINE HYDROCHLORIDE
     Indication: FIBROMYALGIA
     Dosage: 6 MG, TID
     Route: 048
     Dates: start: 2002, end: 2011
  4. ALL OTHER THERAPEUTIC PRODUCTS [Concomitant]
     Active Substance: UNSPECIFIED INGREDIENT
     Indication: PRODUCT USED FOR UNKNOWN INDICATION
     Dosage: UNK
  5. ZANAFLEX [Suspect]
     Active Substance: TIZANIDINE HYDROCHLORIDE
     Dosage: 6 MG, TID
     Route: 048
     Dates: start: 201403

REACTIONS (13)
  - Stress [Unknown]
  - Therapeutic response changed [Unknown]
  - Myalgia [Recovering/Resolving]
  - Fibromyalgia [Recovering/Resolving]
  - Muscular weakness [Recovering/Resolving]
  - Dental discomfort [Recovering/Resolving]
  - Muscle contracture [Recovering/Resolving]
  - Asthenia [Recovering/Resolving]
  - Tachycardia [Recovering/Resolving]
  - Cognitive disorder [Recovering/Resolving]
  - Sensitivity to weather change [Unknown]
  - Incorrect dose administered [Unknown]
  - Tremor [Recovering/Resolving]

NARRATIVE: CASE EVENT DATE: 2011
